FAERS Safety Report 24053338 (Version 1)
Quarter: 2024Q3

REPORT INFORMATION
  Report Type: Spontaneous
  Country: GB (occurrence: None)
  Receive Date: 20240705
  Receipt Date: 20240705
  Transmission Date: 20241017
  Serious: Yes (Disabling, Other)
  Sender: ASTRAZENECA
  Company Number: 2024A149629

PATIENT
  Age: 85 Year
  Sex: Female

DRUGS (10)
  1. DAPAGLIFLOZIN [Suspect]
     Active Substance: DAPAGLIFLOZIN
     Indication: Cardiac failure
     Dosage: 10MG ONCE DAY
     Dates: start: 20240504, end: 20240512
  2. HYDROXYUREA [Concomitant]
     Active Substance: HYDROXYUREA
     Indication: Adverse drug reaction
  3. CLOPIDOGREL [Concomitant]
     Active Substance: CLOPIDOGREL BISULFATE
  4. ISOSORBIDE MONONITRATE [Concomitant]
     Active Substance: ISOSORBIDE MONONITRATE
  5. ASPIRIN [Concomitant]
     Active Substance: ASPIRIN
  6. RAMIPRIL [Concomitant]
     Active Substance: RAMIPRIL
  7. ROSUVASTATIN [Concomitant]
     Active Substance: ROSUVASTATIN
  8. ALLOPURINOL [Concomitant]
     Active Substance: ALLOPURINOL
  9. FUROSEMIDE [Concomitant]
     Active Substance: FUROSEMIDE
  10. BISOPROLOL [Concomitant]
     Active Substance: BISOPROLOL\BISOPROLOL FUMARATE

REACTIONS (3)
  - Urinary incontinence [Recovering/Resolving]
  - Confusional state [Recovering/Resolving]
  - Asthenia [Not Recovered/Not Resolved]

NARRATIVE: CASE EVENT DATE: 20240511
